FAERS Safety Report 11434017 (Version 1)
Quarter: 2015Q3

REPORT INFORMATION
  Report Type: Report from Study
  Country: TW (occurrence: TW)
  Receive Date: 20150831
  Receipt Date: 20150831
  Transmission Date: 20151125
  Serious: Yes (Other)
  Sender: FDA-Public Use
  Company Number: TW-SUN PHARMACEUTICAL INDUSTRIES LTD-2015RR-102236

PATIENT

DRUGS (2)
  1. CISPLATIN. [Suspect]
     Active Substance: CISPLATIN
     Indication: CHEMOTHERAPY
     Dosage: 30 MG/M2, ON DAYS 1, 8 AND 15
     Route: 065
  2. GEMCITABINE [Suspect]
     Active Substance: GEMCITABINE\GEMCITABINE HYDROCHLORIDE
     Indication: CHEMOTHERAPY
     Dosage: 600 MG/M2, ONLY ON DAY 15
     Route: 065

REACTIONS (3)
  - Neutropenia [Unknown]
  - Treatment failure [Unknown]
  - Disease progression [Unknown]
